FAERS Safety Report 16574822 (Version 2)
Quarter: 2019Q3

REPORT INFORMATION
  Report Type: Report from Study
  Country: US (occurrence: US)
  Receive Date: 20190715
  Receipt Date: 20190801
  Transmission Date: 20191004
  Serious: Yes (Hospitalization)
  Sender: FDA-Public Use
  Company Number: US-EXELIXIS-XL18419022415

PATIENT
  Age: 21 Year
  Sex: Male
  Weight: 84.7 kg

DRUGS (20)
  1. ALBUTEROL. [Concomitant]
     Active Substance: ALBUTEROL
  2. NYSTATIN. [Concomitant]
     Active Substance: NYSTATIN
  3. OXYBUTYNIN. [Concomitant]
     Active Substance: OXYBUTYNIN CHLORIDE
  4. ACETAMINOPHEN. [Concomitant]
     Active Substance: ACETAMINOPHEN
  5. EPINEPHRINE. [Concomitant]
     Active Substance: EPINEPHRINE
  6. FLONASE [Concomitant]
     Active Substance: FLUTICASONE PROPIONATE
  7. BACLOFEN. [Concomitant]
     Active Substance: BACLOFEN
  8. KEPPRA [Concomitant]
     Active Substance: LEVETIRACETAM
  9. ZOLOFT [Concomitant]
     Active Substance: SERTRALINE HYDROCHLORIDE
  10. XL184 [Suspect]
     Active Substance: CABOZANTINIB
     Indication: NEOPLASM
     Dosage: 60 MG, QD
     Route: 048
     Dates: start: 20190621
  11. CLINDAMYCIN. [Concomitant]
     Active Substance: CLINDAMYCIN
  12. ISOTRETINOIN. [Suspect]
     Active Substance: ISOTRETINOIN
     Indication: NEOPLASM
     Dosage: 160 MG, BID ON DAYS 1-14
     Route: 048
     Dates: start: 20190621
  13. MIRALAX [Concomitant]
     Active Substance: POLYETHYLENE GLYCOL 3350
  14. AZITHROMYCIN ANHYDROUS. [Concomitant]
     Active Substance: AZITHROMYCIN ANHYDROUS
  15. CEFEPIME [Concomitant]
     Active Substance: CEFEPIME HYDROCHLORIDE
  16. COLACE [Concomitant]
     Active Substance: DOCUSATE SODIUM
  17. TRAZODONE [Concomitant]
     Active Substance: TRAZODONE HYDROCHLORIDE
  18. QVAR [Concomitant]
     Active Substance: BECLOMETHASONE DIPROPIONATE
  19. ENEMEEZ [Concomitant]
     Active Substance: DOCUSATE SODIUM
  20. ZANTAC [Concomitant]
     Active Substance: RANITIDINE HYDROCHLORIDE

REACTIONS (1)
  - Acute respiratory failure [Recovering/Resolving]

NARRATIVE: CASE EVENT DATE: 20190705
